FAERS Safety Report 18701818 (Version 1)
Quarter: 2021Q1

REPORT INFORMATION
  Report Type: Spontaneous
  Country: US (occurrence: US)
  Receive Date: 20210104
  Receipt Date: 20210104
  Transmission Date: 20210419
  Serious: Yes (Other)
  Sender: FDA-Public Use
  Company Number: None

PATIENT
  Age: 53 Year
  Sex: Female

DRUGS (19)
  1. CELECOXIB. [Concomitant]
     Active Substance: CELECOXIB
  2. ADDERALL [Concomitant]
     Active Substance: AMPHETAMINE ASPARTATE\AMPHETAMINE SULFATE\DEXTROAMPHETAMINE SACCHARATE\DEXTROAMPHETAMINE SULFATE
  3. DOXEPIN [Concomitant]
     Active Substance: DOXEPIN
  4. OZEMPIC [Concomitant]
     Active Substance: SEMAGLUTIDE
  5. PRAMIPEXOLE. [Concomitant]
     Active Substance: PRAMIPEXOLE
  6. ZOLPIDEM [Concomitant]
     Active Substance: ZOLPIDEM TARTRATE
  7. HYDROCHLOROTHIAZIDE. [Concomitant]
     Active Substance: HYDROCHLOROTHIAZIDE
  8. OMEPRAZOLE. [Concomitant]
     Active Substance: OMEPRAZOLE
  9. DULOXETINE. [Concomitant]
     Active Substance: DULOXETINE
  10. ESTRADIOL. [Concomitant]
     Active Substance: ESTRADIOL
  11. NUEDEXTA [Concomitant]
     Active Substance: DEXTROMETHORPHAN HYDROBROMIDE\QUINIDINE SULFATE
  12. ENSPRYNG [Suspect]
     Active Substance: SATRALIZUMAB-MWGE
     Indication: MULTIPLE SCLEROSIS
     Route: 058
     Dates: start: 20201230, end: 20201230
  13. EPIPEN [Concomitant]
     Active Substance: EPINEPHRINE
  14. PREGABLIN [Concomitant]
     Active Substance: PREGABALIN
  15. OXYCODONE/APAP [Concomitant]
     Active Substance: ACETAMINOPHEN\OXYCODONE HYDROCHLORIDE
  16. VALACYCLOVIR [Concomitant]
     Active Substance: VALACYCLOVIR HYDROCHLORIDE
  17. FAMOTIDINE. [Concomitant]
     Active Substance: FAMOTIDINE
  18. ATORVASTATIN [Concomitant]
     Active Substance: ATORVASTATIN
  19. LEVOTHYROXINE. [Concomitant]
     Active Substance: LEVOTHYROXINE

REACTIONS (1)
  - Hypersensitivity [None]

NARRATIVE: CASE EVENT DATE: 20201230
